FAERS Safety Report 4594734-6 (Version None)
Quarter: 2005Q1

REPORT INFORMATION
  Report Type: 
  Country: None (occurrence: None)
  Receive Date: 20050301
  Receipt Date: 20040217
  Transmission Date: 20050727
  Serious: Yes (Hospitalization)
  Sender: FDA-Public Use
  Company Number: FR-NOVOPROD-242393

PATIENT
  Age: 68 Year
  Sex: Male
  Weight: 70 kg

DRUGS (6)
  1. ACTRAPID [Suspect]
     Indication: DIABETES MELLITUS
     Dates: start: 20041222
  2. ALDACTONE [Concomitant]
     Dosage: 50 MG, QD
     Route: 048
     Dates: start: 20041227
  3. CALCIPARINE [Concomitant]
     Dosage: .2 MG, BID
     Route: 058
     Dates: start: 20041222
  4. SUFENTA [Concomitant]
     Dates: start: 20041222, end: 20050106
  5. VANCOCIN HCL [Concomitant]
     Dosage: 2 UNK, QD
     Route: 042
     Dates: start: 20041227
  6. NEXIUM [Concomitant]
     Dosage: 40 MG, QD
     Route: 048
     Dates: start: 20041225, end: 20050107

REACTIONS (5)
  - CEREBRAL MALARIA [None]
  - DIARRHOEA [None]
  - ESCHERICHIA INFECTION [None]
  - KLEBSIELLA INFECTION [None]
  - LUNG DISORDER [None]
